FAERS Safety Report 14764281 (Version 2)
Quarter: 2018Q2

REPORT INFORMATION
  Report Type: Spontaneous
  Country: JP (occurrence: JP)
  Receive Date: 20180416
  Receipt Date: 20180521
  Transmission Date: 20180711
  Serious: Yes (Hospitalization, Other)
  Sender: FDA-Public Use
  Company Number: JP-PFIZER INC-2018148297

PATIENT
  Age: 5 Year
  Sex: Male
  Weight: 14.85 kg

DRUGS (1)
  1. GENOTROPIN [Suspect]
     Active Substance: SOMATROPIN
     Indication: DWARFISM
     Dosage: 0.75 MG, 1X/DAY
     Route: 058
     Dates: start: 20170710

REACTIONS (3)
  - Myositis [Recovered/Resolved]
  - Myalgia [Recovered/Resolved]
  - Gastroenteritis rotavirus [Unknown]

NARRATIVE: CASE EVENT DATE: 201803
